FAERS Safety Report 9733462 (Version 4)
Quarter: 2014Q2

REPORT INFORMATION
  Report Type: Report from Study
  Country: CA (occurrence: CA)
  Receive Date: 20131205
  Receipt Date: 20140529
  Transmission Date: 20141212
  Serious: Yes (Other)
  Sender: FDA-Public Use
  Company Number: CA-ROCHE-1281875

PATIENT
  Age: 35 Year
  Sex: Male
  Weight: 86 kg

DRUGS (8)
  1. RITUXAN [Suspect]
     Indication: RHEUMATOID ARTHRITIS
     Dosage: MOST RECENT DOSE RECEIVED ON 11/DEC/2013
     Route: 042
     Dates: start: 20131127
  2. ACTEMRA [Suspect]
     Indication: RHEUMATOID ARTHRITIS
     Route: 042
     Dates: start: 20130618, end: 20130820
  3. NAPROXEN [Concomitant]
     Route: 065
  4. FOLIC ACID [Concomitant]
  5. METHYLPREDNISOLONE [Concomitant]
     Route: 042
     Dates: start: 20131127
  6. ACETAMINOPHEN [Concomitant]
     Route: 048
     Dates: start: 20131127
  7. INDOMETHACIN [Concomitant]
  8. DEXAMETHASONE [Concomitant]
     Route: 065
     Dates: start: 20131210

REACTIONS (6)
  - Liver function test abnormal [Unknown]
  - Influenza [Recovered/Resolved]
  - Infusion related reaction [Recovered/Resolved]
  - Pain in extremity [Unknown]
  - Arthralgia [Unknown]
  - Rheumatoid arthritis [Not Recovered/Not Resolved]
